FAERS Safety Report 6424901-8 (Version None)
Quarter: 2009Q4

REPORT INFORMATION
  Report Type: 
  Country: None (occurrence: None)
  Receive Date: 20091103
  Receipt Date: 20091021
  Transmission Date: 20100525
  Serious: Yes (Disabling)
  Sender: FDA-Public Use
  Company Number: DE-ELI_LILLY_AND_COMPANY-DE200910005346

PATIENT
  Sex: Female
  Weight: 60 kg

DRUGS (9)
  1. FORTEO [Suspect]
     Indication: OSTEOPOROSIS
     Dosage: 20 UG, UNK
     Dates: start: 20090925
  2. THEOPHYLLINE [Concomitant]
     Route: 048
  3. SIMVASTATIN [Concomitant]
  4. SPIRIVA [Concomitant]
     Dosage: 18 MG, UNK
  5. NORVASC [Concomitant]
  6. CALCIUM + VITAMIN D [Concomitant]
  7. ALENDRONATE SODIUM [Concomitant]
  8. VOLTAREN [Concomitant]
  9. DECORTIN [Concomitant]
     Dosage: 5 MG, UNK

REACTIONS (2)
  - DEPRESSED MOOD [None]
  - FATIGUE [None]
